FAERS Safety Report 7225614-5 (Version None)
Quarter: 2011Q1

REPORT INFORMATION
  Report Type: 
  Country: None (occurrence: None)
  Receive Date: 20110107
  Receipt Date: 20110107
  Transmission Date: 20110831
  Serious: Yes (Death)
  Sender: FDA-Public Use
  Company Number: None

PATIENT
  Age: 24 Year
  Sex: Female
  Weight: 119.7496 kg

DRUGS (1)
  1. FENTANYL-50 [Suspect]
     Indication: PAIN
     Dosage: 50 MCG EVERY 72H TRANSDERM
     Route: 062
     Dates: start: 20101118

REACTIONS (1)
  - DEATH [None]
